FAERS Safety Report 23920431 (Version 1)
Quarter: 2024Q2

REPORT INFORMATION
  Report Type: Spontaneous
  Country: US (occurrence: None)
  Receive Date: 20240530
  Receipt Date: 20240530
  Transmission Date: 20240716
  Serious: Yes (Hospitalization)
  Sender: FDA-Public Use
  Company Number: None

PATIENT
  Age: 67 Year
  Sex: Male
  Weight: 104 kg

DRUGS (2)
  1. EZETIMIBE [Suspect]
     Active Substance: EZETIMIBE
     Indication: Hyperlipidaemia
     Dosage: FREQUENCY : DAILY;?
     Route: 048
     Dates: start: 20230914, end: 20240129
  2. GEMFIBROZIL [Suspect]
     Active Substance: GEMFIBROZIL
     Dosage: FREQUENCY : TWICE A DAY;?
     Route: 048
     Dates: start: 20230914

REACTIONS (8)
  - Liver function test increased [None]
  - Myalgia [None]
  - Rhabdomyolysis [None]
  - Renal impairment [None]
  - Therapy cessation [None]
  - Aspartate aminotransferase increased [None]
  - Alanine aminotransferase increased [None]
  - Blood creatinine increased [None]

NARRATIVE: CASE EVENT DATE: 20240129
